FAERS Safety Report 4967943-1 (Version None)
Quarter: 2006Q2

REPORT INFORMATION
  Report Type: 
  Country: None (occurrence: None)
  Receive Date: 20060410
  Receipt Date: 20060403
  Transmission Date: 20061013
  Serious: Yes (Other)
  Sender: FDA-Public Use
  Company Number: US-BRISTOL-MYERS SQUIBB COMPANY-13334743

PATIENT
  Age: 80 Year
  Sex: Male

DRUGS (10)
  1. GATIFLOXACIN [Suspect]
     Indication: PNEUMONIA
     Dosage: DOSE REDUCED TO 200 MG DAILY, THEN DISCONTINUED.
     Route: 048
  2. GLIPIZIDE [Concomitant]
  3. METOPROLOL [Concomitant]
  4. METOPROLOL [Concomitant]
  5. OMEPRAZOLE [Concomitant]
  6. ASPIRIN [Concomitant]
  7. LEVOTHYROXIN [Concomitant]
  8. FELODIPINE [Concomitant]
  9. FINASTERIDE [Concomitant]
  10. HYDROCHLOROTHIAZIDE [Concomitant]

REACTIONS (1)
  - HYPERGLYCAEMIA [None]
